FAERS Safety Report 6086718-6 (Version None)
Quarter: 2009Q1

REPORT INFORMATION
  Report Type: 
  Country: None (occurrence: None)
  Receive Date: 20090223
  Receipt Date: 20090210
  Transmission Date: 20090719
  Serious: Yes (Other)
  Sender: FDA-Public Use
  Company Number: PHHY2009BR04999

PATIENT
  Age: 42 Year
  Sex: Female

DRUGS (5)
  1. ZELMAC [Suspect]
     Indication: IRRITABLE BOWEL SYNDROME
     Dosage: 1 PACKAGE EVERY 6 MONTHS
     Route: 048
     Dates: end: 20080501
  2. ZELMAC [Suspect]
     Dosage: 1 PACKAGE EVERY 9 MONTHS
     Route: 048
  3. ZELMAC [Suspect]
     Dosage: 1 PACKAGE IN 1 YEAR
     Route: 048
  4. ZELMAC [Suspect]
     Dosage: 2 TAB/DAY
     Route: 048
  5. HOMEOPATIC JAPONESE MEDICATION [Concomitant]
     Dosage: UNK
     Dates: end: 20080501

REACTIONS (6)
  - CONSTIPATION [None]
  - FLATULENCE [None]
  - HAEMATOCHEZIA [None]
  - IRRITABLE BOWEL SYNDROME [None]
  - NERVOUSNESS [None]
  - PAIN [None]
